FAERS Safety Report 8780369 (Version 1)
Quarter: 2012Q4

REPORT INFORMATION
  Report Type: Spontaneous
  Country: US (occurrence: None)
  Receive Date: 20120905
  Receipt Date: 20120905
  Transmission Date: 20130627
  Serious: Yes (Other)
  Sender: FDA-Public Use
  Company Number: None

PATIENT
  Age: 55 Year
  Sex: Female
  Weight: 65.32 kg

DRUGS (1)
  1. FENTANYL CITRATE [Suspect]

REACTIONS (4)
  - Surgical failure [None]
  - Impaired driving ability [None]
  - Splenectomy [None]
  - Drug hypersensitivity [None]
